FAERS Safety Report 25171400 (Version 1)
Quarter: 2025Q2

REPORT INFORMATION
  Report Type: Spontaneous
  Country: AU (occurrence: AU)
  Receive Date: 20250408
  Receipt Date: 20250408
  Transmission Date: 20250717
  Serious: Yes (Life-Threatening, Hospitalization, Other)
  Sender: BRISTOL MYERS SQUIBB
  Company Number: AU-BRISTOL-MYERS SQUIBB COMPANY-2025-049395

PATIENT
  Age: 77 Year
  Sex: Female
  Weight: 89 kg

DRUGS (6)
  1. DASATINIB [Suspect]
     Active Substance: DASATINIB
     Indication: Chronic myeloid leukaemia
     Route: 048
     Dates: end: 20250317
  2. DASATINIB [Suspect]
     Active Substance: DASATINIB
     Route: 048
     Dates: start: 20180816
  3. AMITRIPTYLINE [Concomitant]
     Active Substance: AMITRIPTYLINE
     Indication: Depression
  4. ATORVASTATIN [Concomitant]
     Active Substance: ATORVASTATIN
     Indication: Hypercholesterolaemia
  5. PANTOPRAZOLE [Concomitant]
     Active Substance: PANTOPRAZOLE
     Indication: Gastrooesophageal reflux disease
  6. PERINDOPRIL [Concomitant]
     Active Substance: PERINDOPRIL
     Indication: Hypertension
     Dates: start: 20180907

REACTIONS (2)
  - Pericardial effusion [Recovered/Resolved with Sequelae]
  - Pleural effusion [Recovered/Resolved with Sequelae]

NARRATIVE: CASE EVENT DATE: 20250318
